FAERS Safety Report 6620793-2 (Version None)
Quarter: 2010Q1

REPORT INFORMATION
  Report Type: 
  Country: None (occurrence: None)
  Receive Date: 20100309
  Receipt Date: 20100301
  Transmission Date: 20100710
  Serious: Yes (Hospitalization)
  Sender: FDA-Public Use
  Company Number: GB-WATSON-2010-02441

PATIENT
  Age: 2 Year
  Sex: Male
  Weight: 12 kg

DRUGS (1)
  1. PROPRANOLOL [Suspect]
     Indication: LONG QT SYNDROME
     Dosage: 12 MG, TID

REACTIONS (2)
  - HYPOGLYCAEMIA [None]
  - SYNCOPE [None]
